FAERS Safety Report 4834529-9 (Version None)
Quarter: 2005Q4

REPORT INFORMATION
  Report Type: 
  Country: None (occurrence: None)
  Receive Date: 20051122
  Receipt Date: 20050203
  Transmission Date: 20060501
  Serious: No
  Sender: FDA-Public Use
  Company Number: US-BRISTOL-MYERS SQUIBB COMPANY-12848214

PATIENT
  Age: 72 Year
  Sex: Male
  Weight: 73 kg

DRUGS (3)
  1. PRAVACHOL [Suspect]
     Indication: BLOOD CHOLESTEROL INCREASED
  2. CIPROFLOXACIN HCL [Concomitant]
     Indication: NEPHROLITHIASIS
  3. METOCLOPRAMIDE HCL [Concomitant]
     Indication: NEPHROLITHIASIS

REACTIONS (1)
  - RASH [None]
